FAERS Safety Report 15559671 (Version 2)
Quarter: 2019Q1

REPORT INFORMATION
  Report Type: Spontaneous
  Country: US (occurrence: US)
  Receive Date: 20181029
  Receipt Date: 20190117
  Transmission Date: 20190417
  Serious: No
  Sender: FDA-Public Use
  Company Number: US-TEVA-2018-US-967688

PATIENT
  Sex: Male

DRUGS (1)
  1. CLONAZEPAM ACTAVIS [Suspect]
     Active Substance: CLONAZEPAM
     Indication: ANXIETY
     Dosage: 2 MONTHS AGO
     Route: 065

REACTIONS (3)
  - Product use in unapproved indication [Unknown]
  - Drug ineffective [Unknown]
  - Product substitution issue [Unknown]
